FAERS Safety Report 23422618 (Version 1)
Quarter: 2024Q1

REPORT INFORMATION
  Report Type: Report from Study
  Country: US (occurrence: US)
  Receive Date: 20240119
  Receipt Date: 20240119
  Transmission Date: 20240410
  Serious: Yes (Life-Threatening)
  Sender: FDA-Public Use
  Company Number: US-LEO Pharma-366625

PATIENT
  Age: 61 Year
  Sex: Female

DRUGS (3)
  1. ADBRY [Suspect]
     Active Substance: TRALOKINUMAB-LDRM
     Indication: Product used for unknown indication
     Dosage: QTY 4 INJECTIONS OF ADBRY ON 10-DEC-2023 AT THE DOCTORS OFFICE.
     Dates: start: 20231210
  2. ADBRY [Suspect]
     Active Substance: TRALOKINUMAB-LDRM
     Indication: Product used for unknown indication
     Dosage: QTY 4 INJECTIONS OF ADBRY ON 10-DEC-2023 AT THE DOCTORS OFFICE.
     Dates: start: 20231210
  3. LORATADINE [Concomitant]
     Active Substance: LORATADINE
     Indication: Product used for unknown indication
     Dosage: (1) IN THE MORNING AND (1) IN THE EVENING

REACTIONS (3)
  - Urticaria [Unknown]
  - Insomnia [Unknown]
  - Suicidal ideation [Unknown]

NARRATIVE: CASE EVENT DATE: 20231211
